FAERS Safety Report 4842317-2 (Version None)
Quarter: 2005Q4

REPORT INFORMATION
  Report Type: 
  Country: None (occurrence: None)
  Receive Date: 20051129
  Receipt Date: 20051116
  Transmission Date: 20060501
  Serious: Yes (Other)
  Sender: FDA-Public Use
  Company Number: 2005158591

PATIENT
  Age: 50 Year
  Sex: Female

DRUGS (1)
  1. NAVANE [Suspect]
     Indication: ANXIETY
     Dosage: 4 MG (2 MG, 1 IN 1 D, ORAL)
     Route: 048
     Dates: start: 19900101

REACTIONS (3)
  - DIABETES MELLITUS [None]
  - VISION BLURRED [None]
  - WEIGHT DECREASED [None]
